FAERS Safety Report 24770939 (Version 1)
Quarter: 2024Q4

REPORT INFORMATION
  Report Type: Spontaneous
  Country: US (occurrence: None)
  Receive Date: 20241223
  Receipt Date: 20241223
  Transmission Date: 20250115
  Serious: Yes (Hospitalization, Other)
  Sender: Public
  Company Number: None

PATIENT
  Age: 89 Year
  Sex: Male
  Weight: 72.45 kg

DRUGS (11)
  1. VOWST [Suspect]
     Active Substance: DONOR HUMAN STOOL SPORES (ETHANOL TREATED)
     Indication: Clostridium difficile infection
     Dosage: FREQUENCY : DAILY;?
  2. VOWST [Suspect]
     Active Substance: DONOR HUMAN STOOL SPORES (ETHANOL TREATED)
     Indication: Infection prophylaxis
  3. APIXABAN [Concomitant]
     Active Substance: APIXABAN
  4. ATORVASTATIN [Concomitant]
     Active Substance: ATORVASTATIN
  5. CITALOPRAM [Concomitant]
     Active Substance: CITALOPRAM
  6. CLOPIDOGREL [Concomitant]
     Active Substance: CLOPIDOGREL BISULFATE
  7. FINASTERIDE [Concomitant]
     Active Substance: FINASTERIDE
  8. FAMOTIDINE [Concomitant]
     Active Substance: FAMOTIDINE
  9. METOPROLOL TARTRATE [Concomitant]
     Active Substance: METOPROLOL TARTRATE
  10. TAMSULOSIN [Concomitant]
     Active Substance: TAMSULOSIN
  11. FIDAXOMICIN [Concomitant]
     Active Substance: FIDAXOMICIN
     Dates: end: 20241212

REACTIONS (6)
  - Clostridium difficile infection [None]
  - Abdominal distension [None]
  - Nausea [None]
  - Vomiting [None]
  - Chills [None]
  - Escherichia infection [None]

NARRATIVE: CASE EVENT DATE: 20241219
